FAERS Safety Report 9431584 (Version 1)
Quarter: 2013Q3

REPORT INFORMATION
  Report Type: Spontaneous
  Country: GB (occurrence: GB)
  Receive Date: 20130731
  Receipt Date: 20130731
  Transmission Date: 20140515
  Serious: Yes (Other)
  Sender: FDA-Public Use
  Company Number: GB-RANBAXY-2013R1-71613

PATIENT
  Age: 17 Year
  Sex: Female
  Weight: 54.5 kg

DRUGS (2)
  1. FLUOXETINE [Suspect]
     Indication: DEPRESSION
     Dosage: 10 MG, QD
     Route: 048
     Dates: start: 20130429, end: 20130503
  2. MICROGYNON [Suspect]
     Indication: CONTRACEPTION
     Dosage: UNK
     Route: 048
     Dates: end: 20130509

REACTIONS (3)
  - VIIth nerve paralysis [Unknown]
  - Cranial nerve disorder [Unknown]
  - Extrapyramidal disorder [Unknown]
